FAERS Safety Report 9414685 (Version 2)
Quarter: 2013Q3

REPORT INFORMATION
  Report Type: Spontaneous
  Country: US (occurrence: US)
  Receive Date: 20130723
  Receipt Date: 20130816
  Transmission Date: 20140515
  Serious: Yes (Hospitalization, Other)
  Sender: FDA-Public Use
  Company Number: US-MPIJNJ-2013-04896

PATIENT
  Age: 64 Year
  Sex: Male

DRUGS (2)
  1. VELCADE [Suspect]
     Indication: AMYLOIDOSIS
     Dosage: 1.3 MG/M2, 1/WEEK
     Route: 058
     Dates: start: 20120924
  2. VELCADE [Suspect]
     Dosage: 1.5 MG/M2, UNK
     Route: 058

REACTIONS (4)
  - Benign prostatic hyperplasia [Recovered/Resolved with Sequelae]
  - Bladder outlet obstruction [Recovered/Resolved with Sequelae]
  - Renal injury [Not Recovered/Not Resolved]
  - Off label use [Unknown]
